FAERS Safety Report 5737268-5 (Version None)
Quarter: 2008Q2

REPORT INFORMATION
  Report Type: 
  Country: None (occurrence: None)
  Receive Date: 20080512
  Receipt Date: 20080512
  Transmission Date: 20081010
  Serious: Yes (Hospitalization)
  Sender: FDA-Public Use
  Company Number: None

PATIENT
  Age: 54 Year
  Sex: Male
  Weight: 47.1741 kg

DRUGS (1)
  1. ALCOHOL-FREE MOUTHWASH (RECORER # AG-210) [Suspect]

REACTIONS (2)
  - BURKHOLDERIA CEPACIA INFECTION [None]
  - SPUTUM CULTURE POSITIVE [None]
